FAERS Safety Report 5843571-0 (Version None)
Quarter: 2008Q3

REPORT INFORMATION
  Report Type: 
  Country: None (occurrence: None)
  Receive Date: 20080813
  Receipt Date: 20080430
  Transmission Date: 20090109
  Serious: Yes (Other)
  Sender: FDA-Public Use
  Company Number: A0725603A

PATIENT
  Sex: Male

DRUGS (4)
  1. COREG CR [Suspect]
     Indication: PROPHYLAXIS
     Dosage: 20MG PER DAY
     Route: 048
  2. ALTACE [Concomitant]
  3. UROXATRAL [Concomitant]
  4. LIPITOR [Concomitant]

REACTIONS (1)
  - THROMBOCYTOPENIA [None]
